FAERS Safety Report 5562374-8 (Version None)
Quarter: 2007Q4

REPORT INFORMATION
  Report Type: 
  Country: None (occurrence: None)
  Receive Date: 20071215
  Receipt Date: 20070821
  Transmission Date: 20080405
  Serious: No
  Sender: FDA-Public Use
  Company Number: US-AMGEN-US239665

PATIENT
  Sex: Male
  Weight: 69 kg

DRUGS (2)
  1. ARANESP [Suspect]
     Indication: MYELODYSPLASTIC SYNDROME
     Route: 058
     Dates: start: 20061201
  2. VIDAZA [Concomitant]
     Route: 065

REACTIONS (1)
  - HEADACHE [None]
